FAERS Safety Report 7640772-6 (Version None)
Quarter: 2011Q3

REPORT INFORMATION
  Report Type: 
  Country: None (occurrence: None)
  Receive Date: 20110728
  Receipt Date: 20110714
  Transmission Date: 20111222
  Serious: Yes (Death, Congenital Anomaly)
  Sender: FDA-Public Use
  Company Number: SE-ELI_LILLY_AND_COMPANY-SE201107005729

PATIENT

DRUGS (12)
  1. ZYPREXA [Suspect]
     Indication: SCHIZOPHRENIA
     Dosage: 20 MG, QD
     Route: 064
  2. SERTRALINE HYDROCHLORIDE [Concomitant]
     Dosage: 50 MG, QD
     Route: 064
  3. CALCICHEW D3 [Concomitant]
  4. CALCICHEW D3 [Concomitant]
  5. SERTRALINE HYDROCHLORIDE [Concomitant]
     Dosage: 50 MG, QD
     Route: 064
  6. BEHEPAN [Concomitant]
     Dosage: 1 MG, UNK
  7. ZYPREXA [Suspect]
     Dosage: 20 MG, QD
     Route: 064
  8. LERGIGAN [Concomitant]
     Dosage: 50 MG, QD
     Route: 064
  9. OXASCAND [Concomitant]
  10. OXASCAND [Concomitant]
  11. LERGIGAN [Concomitant]
     Dosage: 50 MG, QD
     Route: 064
  12. BEHEPAN [Concomitant]
     Dosage: 1 MG, UNK

REACTIONS (2)
  - MATERNAL EXPOSURE DURING PREGNANCY [None]
  - CONGENITAL ANOMALY [None]
